FAERS Safety Report 8344710-2 (Version None)
Quarter: 2012Q2

REPORT INFORMATION
  Report Type: 
  Country: None (occurrence: None)
  Receive Date: 20120508
  Receipt Date: 20120430
  Transmission Date: 20120825
  Serious: Yes (Death)
  Sender: FDA-Public Use
  Company Number: US-ROCHE-1064881

PATIENT
  Sex: Male
  Weight: 93.07 kg

DRUGS (4)
  1. XOLAIR [Suspect]
     Indication: PRODUCT USED FOR UNKNOWN INDICATION
     Dosage: QZ
     Route: 058
     Dates: start: 20100803, end: 20120110
  2. NUTROPIN [Concomitant]
  3. ADVAIR DISKUS 100/50 [Concomitant]
  4. PROAIR HFA [Concomitant]

REACTIONS (1)
  - DEATH [None]
